FAERS Safety Report 21391788 (Version 1)
Quarter: 2022Q3

REPORT INFORMATION
  Report Type: Spontaneous
  Country: LV (occurrence: LV)
  Receive Date: 20220929
  Receipt Date: 20220929
  Transmission Date: 20221026
  Serious: Yes (Hospitalization, Other)
  Sender: FDA-Public Use
  Company Number: LV-NOVARTISPH-NVSC2022LV218667

PATIENT
  Age: 74 Year
  Sex: Male
  Weight: 89 kg

DRUGS (7)
  1. DICLOFENAC [Suspect]
     Active Substance: DICLOFENAC
     Indication: Pyrexia
     Dosage: UNK UNK, UNKNOWN
     Route: 065
  2. ACETAMINOPHEN [Suspect]
     Active Substance: ACETAMINOPHEN
     Indication: Pyrexia
     Dosage: UNK UNK, UNKNOWN
     Route: 065
  3. TRULICITY [Suspect]
     Active Substance: DULAGLUTIDE
     Indication: Type 2 diabetes mellitus
     Dosage: 1.5 MG, QW (WEEKLY (1/W))
     Route: 058
     Dates: start: 20210329, end: 20211209
  4. METFORMINI HYDROCHLORIDUM [Concomitant]
     Indication: Product used for unknown indication
     Dosage: 2000 MG, QD (1000 MG, BID)
     Route: 065
  5. GLICLAZIDE [Concomitant]
     Active Substance: GLICLAZIDE
     Indication: Product used for unknown indication
     Dosage: 90 MG, QD (DAILY)
     Route: 065
  6. GLICLAZIDE [Concomitant]
     Active Substance: GLICLAZIDE
     Dosage: 60 MG, QD (DAILY)
     Route: 065
  7. DAPAGLIFLOZIN [Concomitant]
     Active Substance: DAPAGLIFLOZIN
     Indication: Product used for unknown indication
     Dosage: UNK, QD (5/1000 MG, BID)
     Route: 065

REACTIONS (9)
  - Diabetic metabolic decompensation [Recovered/Resolved]
  - Hepatic cirrhosis [Not Recovered/Not Resolved]
  - COVID-19 pneumonia [Recovered/Resolved]
  - Drug-induced liver injury [Not Recovered/Not Resolved]
  - Sepsis [Unknown]
  - Hypercoagulation [Recovered/Resolved]
  - Portal hypertension [Unknown]
  - Acute kidney injury [Unknown]
  - Urinary tract infection [Unknown]

NARRATIVE: CASE EVENT DATE: 20211201
